FAERS Safety Report 19710678 (Version 1)
Quarter: 2021Q3

REPORT INFORMATION
  Report Type: Spontaneous
  Country: US (occurrence: US)
  Receive Date: 20210817
  Receipt Date: 20210817
  Transmission Date: 20211014
  Serious: Yes (Other)
  Sender: FDA-Public Use
  Company Number: US-ASTRAZENECA-2021A677624

PATIENT
  Age: 77 Year
  Sex: Male
  Weight: 68 kg

DRUGS (43)
  1. AMIODARONE [Concomitant]
     Active Substance: AMIODARONE
  2. FUROSEMIDE. [Concomitant]
     Active Substance: FUROSEMIDE
     Indication: DIURETIC THERAPY
     Dates: start: 2017, end: 2018
  3. VITAMIN D [Concomitant]
     Active Substance: VITAMIN D NOS
     Indication: VITAMIN D DEFICIENCY
     Dates: start: 2019
  4. JANUVIA [Concomitant]
     Active Substance: SITAGLIPTIN PHOSPHATE
  5. CEFDINIR. [Concomitant]
     Active Substance: CEFDINIR
  6. CIPROFLOXACIN. [Concomitant]
     Active Substance: CIPROFLOXACIN
  7. NEXIUM [Suspect]
     Active Substance: ESOMEPRAZOLE MAGNESIUM
     Indication: GASTROOESOPHAGEAL REFLUX DISEASE
     Dosage: GENERIC
     Route: 065
     Dates: start: 201701, end: 201710
  8. LEVOFLOXACIN. [Concomitant]
     Active Substance: LEVOFLOXACIN
     Indication: INFECTION
     Dates: start: 2018
  9. ACETAMINOPHEN?TYLENOL [Concomitant]
     Indication: PAIN
     Dates: start: 2017
  10. XARELTO [Concomitant]
     Active Substance: RIVAROXABAN
  11. XARELTO [Concomitant]
     Active Substance: RIVAROXABAN
  12. FAMOTIDINE. [Concomitant]
     Active Substance: FAMOTIDINE
     Dates: start: 2018
  13. PROAIR HFA [Concomitant]
     Active Substance: ALBUTEROL SULFATE
  14. NITROFURANTOIN. [Concomitant]
     Active Substance: NITROFURANTOIN
  15. ACETAMINOPHEN?TYLENOL [Concomitant]
     Indication: PYREXIA
     Dates: start: 2017
  16. CARVEDILOL. [Concomitant]
     Active Substance: CARVEDILOL
  17. SOTALOL. [Concomitant]
     Active Substance: SOTALOL
  18. ELIQUIS [Concomitant]
     Active Substance: APIXABAN
  19. LINZESS [Concomitant]
     Active Substance: LINACLOTIDE
  20. PROPRANOLOL [Concomitant]
     Active Substance: PROPRANOLOL HYDROCHLORIDE
  21. AZITHROMYCIN ANHYDROUS. [Concomitant]
     Active Substance: AZITHROMYCIN ANHYDROUS
     Indication: INFECTION
     Dates: start: 2015, end: 2018
  22. DOXYCYCLINE. [Concomitant]
     Active Substance: DOXYCYCLINE
     Indication: INFECTION
     Dates: start: 2017
  23. VITAMIN B12 [Concomitant]
     Active Substance: CYANOCOBALAMIN
     Indication: VITAMIN B12 DEFICIENCY
     Dates: start: 202104
  24. CARVEDILOL. [Concomitant]
     Active Substance: CARVEDILOL
  25. MONTELUKAST [Concomitant]
     Active Substance: MONTELUKAST SODIUM
  26. WARFARIN [Concomitant]
     Active Substance: WARFARIN
  27. SOTALOL. [Concomitant]
     Active Substance: SOTALOL
  28. ELIQUIS [Concomitant]
     Active Substance: APIXABAN
  29. MECLIZINE [Concomitant]
     Active Substance: MECLIZINE HYDROCHLORIDE
  30. CIPROFLOXACIN. [Concomitant]
     Active Substance: CIPROFLOXACIN
  31. PANTOPRAZOLE [Suspect]
     Active Substance: PANTOPRAZOLE
     Indication: GASTROOESOPHAGEAL REFLUX DISEASE
     Route: 065
     Dates: start: 201802
  32. VITAMIN C [Concomitant]
     Active Substance: ASCORBIC ACID
     Indication: VITAMIN C DEFICIENCY
     Dates: start: 2019
  33. JANUVIA [Concomitant]
     Active Substance: SITAGLIPTIN PHOSPHATE
  34. PROAIR HFA [Concomitant]
     Active Substance: ALBUTEROL SULFATE
  35. MONTELUKAST [Concomitant]
     Active Substance: MONTELUKAST SODIUM
  36. QVAR [Concomitant]
     Active Substance: BECLOMETHASONE DIPROPIONATE
  37. WARFARIN [Concomitant]
     Active Substance: WARFARIN
  38. MECLIZINE [Concomitant]
     Active Substance: MECLIZINE HYDROCHLORIDE
  39. ROSUVASTATIN. [Concomitant]
     Active Substance: ROSUVASTATIN
     Indication: BLOOD CHOLESTEROL INCREASED
     Dates: start: 2017
  40. FOLIC ACID B COMPLEX [Concomitant]
     Indication: FOLATE DEFICIENCY
     Dates: start: 2018
  41. QVAR [Concomitant]
     Active Substance: BECLOMETHASONE DIPROPIONATE
  42. NEXIUM [Suspect]
     Active Substance: ESOMEPRAZOLE MAGNESIUM
     Indication: GASTROOESOPHAGEAL REFLUX DISEASE
     Route: 048
     Dates: start: 2014, end: 2018
  43. CEFDINIR. [Concomitant]
     Active Substance: CEFDINIR

REACTIONS (1)
  - Gastric cancer stage II [Not Recovered/Not Resolved]

NARRATIVE: CASE EVENT DATE: 2017
